FAERS Safety Report 18869454 (Version 3)
Quarter: 2021Q3

REPORT INFORMATION
  Report Type: Spontaneous
  Country: US (occurrence: US)
  Receive Date: 20210210
  Receipt Date: 20210914
  Transmission Date: 20211014
  Serious: Yes (Hospitalization, Other)
  Sender: FDA-Public Use
  Company Number: US-SA-2021SA040800

PATIENT
  Age: 48 Year
  Sex: Female

DRUGS (3)
  1. DUPIXENT [Suspect]
     Active Substance: DUPILUMAB
     Indication: NEURODERMATITIS
     Dosage: 300 MG, QOW
     Route: 058
     Dates: start: 20210603
  2. REMDESIVIR. [Concomitant]
     Active Substance: REMDESIVIR
     Dosage: UNK
     Route: 065
  3. DUPIXENT [Suspect]
     Active Substance: DUPILUMAB
     Indication: ASTHMA
     Dosage: 300 MG, QOW
     Route: 058

REACTIONS (10)
  - Thrombosis [Unknown]
  - Chills [Unknown]
  - Wheezing [Unknown]
  - Heart rate increased [Unknown]
  - Pyrexia [Unknown]
  - Headache [Unknown]
  - COVID-19 [Unknown]
  - Cough [Unknown]
  - Product dose omission issue [Unknown]
  - Oxygen saturation decreased [Unknown]
